FAERS Safety Report 16949021 (Version 2)
Quarter: 2021Q2

REPORT INFORMATION
  Report Type: Spontaneous
  Country: US (occurrence: US)
  Receive Date: 20191023
  Receipt Date: 20210525
  Transmission Date: 20210716
  Serious: No
  Sender: FDA-Public Use
  Company Number: US-PURDUE-USA-2019-0147111

PATIENT
  Sex: Female

DRUGS (2)
  1. OXYCONTIN [Suspect]
     Active Substance: OXYCODONE HYDROCHLORIDE
     Dosage: 60 MG, Q8H
     Route: 048
  2. OXYCONTIN [Suspect]
     Active Substance: OXYCODONE HYDROCHLORIDE
     Indication: PAIN
     Dosage: 80 MG, UNK
     Route: 048

REACTIONS (10)
  - Psoriasis [Unknown]
  - Pruritus [Not Recovered/Not Resolved]
  - Unevaluable event [Unknown]
  - Drug ineffective [Unknown]
  - Arthralgia [Unknown]
  - Off label use [Not Recovered/Not Resolved]
  - Pain [Not Recovered/Not Resolved]
  - Swelling [Unknown]
  - Therapeutic product effect decreased [Not Recovered/Not Resolved]
  - Suspected counterfeit product [Not Recovered/Not Resolved]
